FAERS Safety Report 5424941-1 (Version None)
Quarter: 2007Q3

REPORT INFORMATION
  Report Type: 
  Country: None (occurrence: None)
  Receive Date: 20070824
  Receipt Date: 20070817
  Transmission Date: 20080115
  Serious: Yes (Hospitalization, Other)
  Sender: FDA-Public Use
  Company Number: A0666522A

PATIENT
  Age: 41 Year
  Sex: Male
  Weight: 75 kg

DRUGS (2)
  1. EPZICOM [Suspect]
     Indication: HIV INFECTION
     Route: 048
  2. UNKNOWN [Concomitant]

REACTIONS (11)
  - CHEST DISCOMFORT [None]
  - DIARRHOEA [None]
  - DRUG HYPERSENSITIVITY [None]
  - DYSPNOEA [None]
  - DYSPNOEA EXERTIONAL [None]
  - NAUSEA [None]
  - ORTHOPNOEA [None]
  - PNEUMONIA NECROTISING [None]
  - PULMONARY OEDEMA [None]
  - PYREXIA [None]
  - VOMITING [None]
